FAERS Safety Report 8421802-0 (Version None)
Quarter: 2012Q2

REPORT INFORMATION
  Report Type: 
  Country: None (occurrence: None)
  Receive Date: 20120601
  Receipt Date: 20120521
  Transmission Date: 20120825
  Serious: Yes (Other)
  Sender: FDA-Public Use
  Company Number: 1296283

PATIENT
  Age: 57 Year
  Sex: Female

DRUGS (3)
  1. PACLITAXEL [Suspect]
     Indication: BREAST CANCER
     Dosage: 141 MG, CYCLIC, INTRAVENOUS
     Route: 042
     Dates: start: 20120514, end: 20120514
  2. HERCEPTIN [Concomitant]
  3. FERROUS CARBONATE [Concomitant]

REACTIONS (4)
  - DYSPNOEA [None]
  - NAUSEA [None]
  - DYSPHAGIA [None]
  - FLUSHING [None]
